FAERS Safety Report 17358434 (Version 1)
Quarter: 2020Q1

REPORT INFORMATION
  Report Type: Spontaneous
  Country: US (occurrence: US)
  Receive Date: 20200201
  Receipt Date: 20200201
  Transmission Date: 20200409
  Serious: Yes (Death)
  Sender: FDA-Public Use
  Company Number: US-BAYER-2020-013627

PATIENT
  Age: 67 Year
  Sex: Female

DRUGS (17)
  1. ACETYLSALICYLIC ACID [Suspect]
     Active Substance: ASPIRIN
  2. IBANDRONATE [Suspect]
     Active Substance: IBANDRONATE SODIUM
  3. MULTIVITAMINS [VITAMINS NOS] [Concomitant]
     Active Substance: VITAMINS
  4. CALCIUM [Concomitant]
     Active Substance: CALCIUM
  5. BUPROPION. [Concomitant]
     Active Substance: BUPROPION
  6. ATORVASTATIN [Concomitant]
     Active Substance: ATORVASTATIN
  7. PROPYLTHIOURACIL. [Concomitant]
     Active Substance: PROPYLTHIOURACIL
  8. PARACETAMOL [Suspect]
     Active Substance: ACETAMINOPHEN
  9. ALBUTEROL HFA [Concomitant]
     Active Substance: ALBUTEROL SULFATE
  10. AMLODIPINE [Concomitant]
     Active Substance: AMLODIPINE BESYLATE
  11. ERGOCALCIFEROL. [Concomitant]
     Active Substance: ERGOCALCIFEROL
  12. HYDRALAZINE [Concomitant]
     Active Substance: HYDRALAZINE HYDROCHLORIDE
  13. OMEPRAZOLE. [Concomitant]
     Active Substance: OMEPRAZOLE
  14. FLUTICASONE. [Concomitant]
     Active Substance: FLUTICASONE
  15. PANCRELIPASE. [Concomitant]
     Active Substance: PANCRELIPASE
  16. FUROSEMIDE. [Concomitant]
     Active Substance: FUROSEMIDE
  17. LORATADINE. [Concomitant]
     Active Substance: LORATADINE

REACTIONS (6)
  - Sepsis [Fatal]
  - Gastrointestinal haemorrhage [Fatal]
  - Shock [Fatal]
  - Anaemia [None]
  - Pneumonia aspiration [Fatal]
  - Acute hepatic failure [Fatal]
